FAERS Safety Report 8157877-6 (Version None)
Quarter: 2012Q1

REPORT INFORMATION
  Report Type: 
  Country: None (occurrence: None)
  Receive Date: 20120222
  Receipt Date: 20120214
  Transmission Date: 20120608
  Serious: Yes (Disabling, Other)
  Sender: FDA-Public Use
  Company Number: CH-ASTRAZENECA-2012SE10257

PATIENT
  Age: 67 Year
  Sex: Female

DRUGS (1)
  1. MEPIVACAINE HCL [Suspect]
     Route: 053

REACTIONS (2)
  - OPTIC NERVE SHEATH HAEMORRHAGE [None]
  - RETINAL ARTERY OCCLUSION [None]
